FAERS Safety Report 5368907-9 (Version None)
Quarter: 2007Q2

REPORT INFORMATION
  Report Type: 
  Country: None (occurrence: None)
  Receive Date: 20070625
  Receipt Date: 20061102
  Transmission Date: 20071010
  Serious: No
  Sender: FDA-Public Use
  Company Number: US-ASTRAZENECA-2006UW21517

PATIENT
  Age: 71 Year
  Sex: Female
  Weight: 90.3 kg

DRUGS (11)
  1. CRESTOR [Suspect]
     Indication: BLOOD CHOLESTEROL INCREASED
     Route: 048
  2. ATENOLOL [Concomitant]
  3. COUMADIN [Concomitant]
  4. GLYBURIDE AND METFORMIN HCL [Concomitant]
  5. ENDUR [Concomitant]
  6. LASIX [Concomitant]
  7. LOTREL [Concomitant]
  8. MOBIC [Concomitant]
  9. NORTRIPTYLINE HCL [Concomitant]
  10. POTASSIUM ACETATE [Concomitant]
  11. SYNTHROID [Concomitant]

REACTIONS (2)
  - BLOOD TRIGLYCERIDES INCREASED [None]
  - MYALGIA [None]
